FAERS Safety Report 6793307-4 (Version None)
Quarter: 2010Q2

REPORT INFORMATION
  Report Type: 
  Country: None (occurrence: None)
  Receive Date: 20100624
  Receipt Date: 20100420
  Transmission Date: 20101027
  Serious: Yes (Other)
  Sender: FDA-Public Use
  Company Number: US-MYLANLABS-2009S1019653

PATIENT
  Age: 54 Year
  Sex: Male

DRUGS (10)
  1. CLOZAPINE [Suspect]
     Dates: start: 20090901, end: 20091109
  2. CLOZAPINE [Suspect]
     Dates: start: 20091115
  3. CLOZAPINE [Suspect]
     Route: 048
     Dates: start: 20090901, end: 20091109
  4. CLOZAPINE [Suspect]
     Route: 048
     Dates: start: 20091115
  5. DEPAKOTE [Concomitant]
  6. LEVOTHYROXINE [Concomitant]
  7. GEMFIBROZIL [Concomitant]
  8. LIPITOR [Concomitant]
  9. ZOLOFT [Concomitant]
  10. DITROPAN [Concomitant]

REACTIONS (2)
  - GRANULOCYTOPENIA [None]
  - LEUKOPENIA [None]
